FAERS Safety Report 25066129 (Version 1)
Quarter: 2025Q1

REPORT INFORMATION
  Report Type: Spontaneous
  Country: BR (occurrence: BR)
  Receive Date: 20250312
  Receipt Date: 20250312
  Transmission Date: 20250409
  Serious: Yes (Other)
  Sender: AZURITY PHARMACEUTICALS
  Company Number: BR-AZURITY PHARMACEUTICALS, INC.-AZR202502-000713

PATIENT
  Age: 76 Year
  Sex: Male
  Weight: 87 kg

DRUGS (11)
  1. TRIPTORELIN [Suspect]
     Active Substance: TRIPTORELIN
     Indication: Prostate cancer
     Route: 030
     Dates: start: 202409, end: 20250104
  2. GLIFAGE [Concomitant]
     Active Substance: METFORMIN HYDROCHLORIDE
     Indication: Type 2 diabetes mellitus
     Route: 048
     Dates: start: 2018
  3. ENTRESTO [Concomitant]
     Active Substance: SACUBITRIL\VALSARTAN
     Indication: Hypertension
     Dosage: 97MG+103MG ONE TABLET IN THE MORNING AND ANOTHER ONE AT NIGHT
     Route: 048
     Dates: start: 2018
  4. ROSUVASTATIN [Concomitant]
     Active Substance: ROSUVASTATIN
     Indication: Blood cholesterol
     Route: 048
     Dates: start: 2018
  5. CLOPIDOGREL [Concomitant]
     Active Substance: CLOPIDOGREL BISULFATE
     Indication: Poor peripheral circulation
     Route: 048
     Dates: start: 2004
  6. EZETIMIBE [Concomitant]
     Active Substance: EZETIMIBE
     Indication: Blood cholesterol
     Route: 048
     Dates: start: 2018
  7. DAPAGLIFLOZIN [Concomitant]
     Active Substance: DAPAGLIFLOZIN
     Indication: Cardiac failure
     Route: 048
     Dates: start: 2018
  8. ASPIRIN [Concomitant]
     Active Substance: ASPIRIN
     Indication: Poor peripheral circulation
     Route: 048
     Dates: start: 2004
  9. CARVEDILOL [Concomitant]
     Active Substance: CARVEDILOL
     Indication: Cardiac failure
     Dosage: ONE TABLET IN THE MORNING AND ANOTHER ONE AT NIGHT
     Route: 048
     Dates: start: 2018
  10. VASTAREL [Concomitant]
     Active Substance: TRIMETAZIDINE DIHYDROCHLORIDE
     Indication: Product used for unknown indication
     Dosage: ONE TABLET IN THE MORNING AND ANOTHER ONE AT NIGHT
     Route: 048
     Dates: start: 202412
  11. METOPROLOL SUCCINATE [Concomitant]
     Active Substance: METOPROLOL SUCCINATE
     Indication: Cardiac failure
     Dosage: ONE TABLET IN THE MORNING AND ANOTHER ONE AT NIGHT
     Route: 048
     Dates: start: 202411

REACTIONS (5)
  - Vertebral column mass [Not Recovered/Not Resolved]
  - Subclavian artery occlusion [Not Recovered/Not Resolved]
  - Prostatic mass [Not Recovered/Not Resolved]
  - Arrhythmia [Not Recovered/Not Resolved]
  - Condition aggravated [Not Recovered/Not Resolved]

NARRATIVE: CASE EVENT DATE: 20241101
